FAERS Safety Report 6165875-7 (Version None)
Quarter: 2009Q2

REPORT INFORMATION
  Report Type: 
  Country: None (occurrence: None)
  Receive Date: 20090423
  Receipt Date: 20090414
  Transmission Date: 20091009
  Serious: Yes (Hospitalization)
  Sender: FDA-Public Use
  Company Number: FR-MERCK-0904FRA00043

PATIENT
  Age: 85 Year
  Sex: Male

DRUGS (2)
  1. NOROXIN [Suspect]
     Route: 048
     Dates: start: 20081128, end: 20081202
  2. ACETAMINOPHEN [Suspect]
     Route: 048
     Dates: end: 20081205

REACTIONS (6)
  - BLOOD ALKALINE PHOSPHATASE INCREASED [None]
  - CHOLESTASIS [None]
  - CONDITION AGGRAVATED [None]
  - CYTOLYTIC HEPATITIS [None]
  - GAMMA-GLUTAMYLTRANSFERASE INCREASED [None]
  - TRANSAMINASES INCREASED [None]
